FAERS Safety Report 24711479 (Version 1)
Quarter: 2024Q4

REPORT INFORMATION
  Report Type: Spontaneous
  Country: US (occurrence: US)
  Receive Date: 20241209
  Receipt Date: 20241209
  Transmission Date: 20250115
  Serious: No
  Sender: HIKMA
  Company Number: HIKM2403497

PATIENT
  Sex: Male

DRUGS (1)
  1. FUROSEMIDE [Suspect]
     Active Substance: FUROSEMIDE
     Indication: Pericardial effusion
     Dosage: 1 DOSAGE FORM, QD
     Route: 048

REACTIONS (1)
  - Urinary incontinence [Unknown]
